FAERS Safety Report 12474300 (Version 1)
Quarter: 2016Q2

REPORT INFORMATION
  Report Type: Spontaneous
  Country: US (occurrence: None)
  Receive Date: 20160616
  Receipt Date: 20160616
  Transmission Date: 20160815
  Serious: Yes (Death)
  Sender: FDA-Public Use
  Company Number: None

PATIENT
  Age: 70 Year
  Sex: Female
  Weight: 82.7 kg

DRUGS (1)
  1. INTRON A [Suspect]
     Active Substance: INTERFERON ALFA-2B
     Dosage: 37 MILLION IU
     Dates: end: 20121022

REACTIONS (4)
  - Pulmonary mass [None]
  - Malignant neoplasm progression [None]
  - Malignant melanoma [None]
  - Lymphadenopathy [None]

NARRATIVE: CASE EVENT DATE: 20150106
